FAERS Safety Report 8783174 (Version 1)
Quarter: 2012Q4

REPORT INFORMATION
  Report Type: 
  Country: US (occurrence: US)
  Receive Date: 20120913
  Receipt Date: 20120913
  Transmission Date: 20130627
  Serious: Yes (Other)
  Sender: FDA-Public Use
  Company Number: US-ROCHE-1113601

PATIENT
  Sex: Male

DRUGS (1)
  1. RITUXAN [Suspect]
     Indication: B-CELL LYMPHOMA

REACTIONS (2)
  - Non-Hodgkin^s lymphoma recurrent [Unknown]
  - Drug ineffective [Unknown]
